FAERS Safety Report 17057868 (Version 6)
Quarter: 2022Q1

REPORT INFORMATION
  Report Type: Spontaneous
  Country: IN (occurrence: IN)
  Receive Date: 20191121
  Receipt Date: 20220322
  Transmission Date: 20220424
  Serious: Yes (Other)
  Sender: FDA-Public Use
  Company Number: IN-PFIZER INC-2018355723

PATIENT
  Age: 73 Year
  Sex: Female

DRUGS (1)
  1. AROMASIN [Suspect]
     Active Substance: EXEMESTANE
     Indication: Breast cancer
     Dosage: 25 MG, DAILY
     Route: 048
     Dates: start: 20160822, end: 20201120

REACTIONS (7)
  - Bronchiectasis [Unknown]
  - Neoplasm progression [Unknown]
  - Weight fluctuation [Unknown]
  - Dysphagia [Unknown]
  - Weight decreased [Unknown]
  - Bone pain [Unknown]
  - Magnetic resonance imaging head abnormal [Unknown]
